FAERS Safety Report 18816561 (Version 1)
Quarter: 2021Q1

REPORT INFORMATION
  Report Type: Spontaneous
  Country: US (occurrence: US)
  Receive Date: 20210201
  Receipt Date: 20210201
  Transmission Date: 20210419
  Serious: Yes (Life-Threatening, Hospitalization)
  Sender: FDA-Public Use
  Company Number: US-MYLANLABS-2021M1004982

PATIENT
  Sex: Male

DRUGS (3)
  1. ALLOPURINOL MYLAN [Suspect]
     Active Substance: ALLOPURINOL
     Dosage: 450 MILLIGRAM, QD
     Route: 065
  2. POTASSIUM CITRATE. [Concomitant]
     Active Substance: POTASSIUM CITRATE
     Indication: HYPOXANTHINE-GUANINE PHOSPHORIBOSYL TRANSFERASE DEFICIENCY
     Dosage: 5 MILLIEQUIVALENT, BID
     Route: 065
  3. ALLOPURINOL MYLAN [Suspect]
     Active Substance: ALLOPURINOL
     Indication: HYPERURICAEMIA
     Dosage: 750 MILLIGRAM, QD
     Route: 065

REACTIONS (6)
  - Bacterial pyelonephritis [Unknown]
  - Urinary tract infection [Unknown]
  - Sepsis [Unknown]
  - Metabolic disorder [Unknown]
  - Calculus urinary [Unknown]
  - Enterococcal infection [Unknown]
